FAERS Safety Report 12860739 (Version 1)
Quarter: 2016Q4

REPORT INFORMATION
  Report Type: Spontaneous
  Country: PL (occurrence: PL)
  Receive Date: 20161019
  Receipt Date: 20161019
  Transmission Date: 20170207
  Serious: Yes (Other)
  Sender: FDA-Public Use
  Company Number: PL-BRISTOL-MYERS SQUIBB COMPANY-BMS-2016-085521

PATIENT
  Age: 77 Year
  Sex: Male

DRUGS (2)
  1. OPDIVO [Suspect]
     Active Substance: NIVOLUMAB
     Indication: METASTATIC MALIGNANT MELANOMA
     Route: 065
     Dates: start: 201608, end: 20160929
  2. RELANIUM                           /00011502/ [Concomitant]
     Indication: PRODUCT USED FOR UNKNOWN INDICATION
     Dosage: UNK
     Route: 065
     Dates: start: 20160929

REACTIONS (2)
  - Speech disorder [Recovering/Resolving]
  - Altered state of consciousness [Unknown]

NARRATIVE: CASE EVENT DATE: 20160929
